FAERS Safety Report 9027873 (Version 3)
Quarter: 2014Q3

REPORT INFORMATION
  Report Type: Spontaneous
  Country: US (occurrence: None)
  Receive Date: 20120831
  Receipt Date: 20140821
  Transmission Date: 20150326
  Serious: Yes (Hospitalization, Other)
  Sender: FDA-Public Use
  Company Number: 2011SGN00192

PATIENT
  Age: 3 Year
  Sex: Male

DRUGS (1)
  1. BRENTUXIMAB VEDOTIN [Suspect]
     Active Substance: BRENTUXIMAB VEDOTIN
     Indication: ANAPLASTIC LARGE-CELL LYMPHOMA
     Route: 042
     Dates: start: 20110617, end: 20110624

REACTIONS (17)
  - Cough [None]
  - Weight bearing difficulty [None]
  - Aspartate aminotransferase increased [None]
  - Asthenia [None]
  - Chills [None]
  - Thrombocytopenia [None]
  - Neutropenia [None]
  - Hyporeflexia [None]
  - Tremor [None]
  - Muscular weakness [None]
  - Peripheral motor neuropathy [None]
  - Pyrexia [None]
  - Alanine aminotransferase increased [None]
  - Wheezing [None]
  - Axonal neuropathy [None]
  - Dysstasia [None]
  - Tachypnoea [None]

NARRATIVE: CASE EVENT DATE: 20110617
